FAERS Safety Report 4802228-5 (Version None)
Quarter: 2005Q4

REPORT INFORMATION
  Report Type: 
  Country: None (occurrence: None)
  Receive Date: 20051012
  Receipt Date: 20050929
  Transmission Date: 20060501
  Serious: Yes (Hospitalization)
  Sender: FDA-Public Use
  Company Number: 2005BI005700

PATIENT
  Sex: Female
  Weight: 92.9874 kg

DRUGS (1)
  1. AVONEX [Suspect]
     Indication: MULTIPLE SCLEROSIS
     Dosage: 30 UG;QW; IM
     Route: 030
     Dates: start: 20041001

REACTIONS (7)
  - CARDIAC DISORDER [None]
  - CONDITION AGGRAVATED [None]
  - DIABETIC MICROANGIOPATHY [None]
  - DYSPNOEA [None]
  - FATIGUE [None]
  - ISCHAEMIA [None]
  - MULTIPLE SCLEROSIS [None]
